FAERS Safety Report 4668640-2 (Version None)
Quarter: 2005Q2

REPORT INFORMATION
  Report Type: 
  Country: None (occurrence: None)
  Receive Date: 20050523
  Receipt Date: 20040618
  Transmission Date: 20051028
  Serious: Yes (Death, Hospitalization)
  Sender: FDA-Public Use
  Company Number: DE-NOVOPROD-237728

PATIENT
  Age: 79 Year
  Sex: Female
  Weight: 65 kg

DRUGS (21)
  1. ACTRAPID [Suspect]
     Indication: DIABETES MELLITUS
     Dosage: 15-70 IU, QD
     Route: 058
     Dates: start: 20040606, end: 20040702
  2. HEMOHES [Concomitant]
  3. DOBUTAMIN ^HEXAL^ [Concomitant]
  4. NOREPINEPHRINE [Concomitant]
  5. FUROSEMID ^DAK^ [Concomitant]
  6. INTRAFUSIN [Concomitant]
  7. TPN [Concomitant]
  8. INTRALIPID 10% [Concomitant]
  9. RANITIDIN ^ALIUD PHARMA^ [Concomitant]
     Route: 042
  10. PIRITRAMIDE [Concomitant]
     Route: 042
  11. NEOSTIGMINE [Concomitant]
     Route: 042
  12. PANTHENOL [Concomitant]
     Route: 042
  13. CERNEVIT-12 [Concomitant]
     Route: 042
  14. MCP ^ALIUD PHARMA^ [Concomitant]
     Route: 042
  15. NADROPARIN [Concomitant]
  16. LORAZEPAM [Concomitant]
     Route: 048
  17. EMSER SOLE [Concomitant]
     Route: 055
  18. TAZOBAC [Concomitant]
  19. NACL [Concomitant]
  20. ACETYLCYSTEINE [Concomitant]
     Route: 042
  21. SACCHAROMYCES BOULARDII [Concomitant]
     Route: 048

REACTIONS (5)
  - ABDOMINAL PAIN [None]
  - HYPOGLYCAEMIC COMA [None]
  - ILEUS [None]
  - SEPTIC SHOCK [None]
  - TREATMENT NONCOMPLIANCE [None]
